FAERS Safety Report 19410502 (Version 4)
Quarter: 2021Q4

REPORT INFORMATION
  Report Type: Report from Study
  Country: GB (occurrence: GB)
  Receive Date: 20210614
  Receipt Date: 20211207
  Transmission Date: 20220303
  Serious: Yes (Hospitalization, Other)
  Sender: FDA-Public Use
  Company Number: GB-CELLTRION INC.-2021GB007861

PATIENT

DRUGS (166)
  1. TRASTUZUMAB [Suspect]
     Active Substance: TRASTUZUMAB
     Indication: Breast cancer
     Dosage: 600 MG (DOSE FORM: 231)
     Route: 058
     Dates: start: 20180202, end: 20180827
  2. LETROZOLE [Suspect]
     Active Substance: LETROZOLE
     Indication: Breast cancer
     Dosage: 2.5 MG, QD (CUMULATIVE DOSE TO FIRST REACTION: 92.5 MG)
     Route: 048
     Dates: start: 20180119, end: 20180126
  3. LETROZOLE [Suspect]
     Active Substance: LETROZOLE
     Dosage: 2.5 MG, QD (CUMULATIVE DOSE TO FIRST REACTION: 92.5 MG)
     Route: 048
     Dates: start: 20180119, end: 20180126
  4. LETROZOLE [Suspect]
     Active Substance: LETROZOLE
     Dosage: 2.5 MG, QD (CUMULATIVE DOSE TO FIRST REACTION: 222.39583 MG)
     Route: 048
     Dates: start: 20180525, end: 20181011
  5. LETROZOLE [Suspect]
     Active Substance: LETROZOLE
     Dosage: 2.5 MG, QD (CUMULATIVE DOSE TO FIRST REACTION: 222.39583 MG)
     Route: 048
     Dates: start: 20180525, end: 20181011
  6. PACLITAXEL [Suspect]
     Active Substance: PACLITAXEL
     Indication: Breast cancer
     Dosage: 156 MG, 1/WEEK (CUMULATIVE DOSE TO FIRST REACTION: 512.5714 MG)
     Route: 042
     Dates: start: 20180202, end: 20180518
  7. PACLITAXEL [Suspect]
     Active Substance: PACLITAXEL
     Indication: Breast cancer
     Dosage: 156 MG
     Route: 042
     Dates: start: 20180202, end: 20180518
  8. ADO-TRASTUZUMAB EMTANSINE [Suspect]
     Active Substance: ADO-TRASTUZUMAB EMTANSINE
     Indication: Breast cancer
     Dosage: 420 MG EVERY 3 WEEKS (DOSE FORM: 230)
     Route: 042
     Dates: start: 20181019, end: 20190927
  9. CALCIUM CARBONATE\CHOLECALCIFEROL [Concomitant]
     Active Substance: CALCIUM CARBONATE\CHOLECALCIFEROL
     Dosage: 4 DF QD (DOSE FORM: 5)
     Route: 048
     Dates: start: 20140127
  10. CALCIUM CARBONATE\CHOLECALCIFEROL [Concomitant]
     Active Substance: CALCIUM CARBONATE\CHOLECALCIFEROL
     Dosage: 2 DOSAGE AND 21 DAYS
     Route: 048
     Dates: start: 20140127
  11. AMOXICILLIN [Concomitant]
     Active Substance: AMOXICILLIN
     Dosage: 3 G, QD
     Route: 042
     Dates: start: 20190911, end: 20190915
  12. AMOXICILLIN [Concomitant]
     Active Substance: AMOXICILLIN
     Dosage: 1 G AND 31 DAYS
     Route: 042
     Dates: start: 20190911, end: 20190915
  13. BENDROFLUMETHIAZIDE [Concomitant]
     Active Substance: BENDROFLUMETHIAZIDE
     Dosage: 2.5 MG, QD (DOSE FORM: 245; CUMULATIVE DOSE TO FIRST REACTION: 13802.5 MG)
     Route: 048
     Dates: start: 20030114
  14. BENDROFLUMETHIAZIDE [Concomitant]
     Active Substance: BENDROFLUMETHIAZIDE
     Dosage: 2.5 MG, QD (DOSE FORM: 245; CUMULATIVE DOSE TO FIRST REACTION: 1399.8959 MG)
     Route: 048
     Dates: start: 20190908
  15. BENDROFLUMETHIAZIDE [Concomitant]
     Active Substance: BENDROFLUMETHIAZIDE
     Dosage: 2.5 MG AND 11 DAYS
     Route: 048
     Dates: start: 20030114
  16. BENDROFLUMETHIAZIDE [Concomitant]
     Active Substance: BENDROFLUMETHIAZIDE
     Dosage: 2.5 MG AND 11 DAYS
     Route: 048
     Dates: start: 20190908
  17. BENZYDAMINE [Concomitant]
     Active Substance: BENZYDAMINE
     Dosage: 5 ML (MOUTHWASH)
     Route: 065
     Dates: start: 20180414
  18. CARBOXYMETHYLCELLULOSE [Concomitant]
     Active Substance: CARBOXYMETHYLCELLULOSE
     Dosage: UNK
     Route: 061
     Dates: start: 20181220, end: 20190116
  19. CARBOXYMETHYLCELLULOSE SODIUM [Concomitant]
     Active Substance: CARBOXYMETHYLCELLULOSE SODIUM
     Dosage: UNK
     Route: 061
     Dates: start: 20181220, end: 20190116
  20. CETIRIZINE [Concomitant]
     Active Substance: CETIRIZINE HYDROCHLORIDE
     Dosage: 10 MICROGRAM (DOSE FORM: 245)
     Route: 048
     Dates: start: 20080430
  21. CETIRIZINE [Concomitant]
     Active Substance: CETIRIZINE HYDROCHLORIDE
     Dosage: 10 MICROGRAM (DOSE FORM: 245)
     Route: 048
     Dates: start: 20080430
  22. CETIRIZINE [Concomitant]
     Active Substance: CETIRIZINE HYDROCHLORIDE
     Dosage: 10 MICROGRAM
     Route: 048
     Dates: start: 20080430
  23. CHLORHEXIDINE [Concomitant]
     Active Substance: CHLORHEXIDINE
     Dosage: 10 ML AS NEEDED
     Route: 065
     Dates: start: 20181019
  24. CHLORPHENIRAMINE MALEATE [Concomitant]
     Active Substance: CHLORPHENIRAMINE MALEATE
     Dosage: 10 MG (TAKEN PRIOR TO STUDY)
     Route: 042
     Dates: start: 20180202
  25. CHLORPHENIRAMINE MALEATE [Concomitant]
     Active Substance: CHLORPHENIRAMINE MALEATE
     Dosage: 4 MG, QD (DOSE FORM: 245)
     Route: 048
     Dates: start: 20190909, end: 20190915
  26. CHLORPHENIRAMINE MALEATE [Concomitant]
     Active Substance: CHLORPHENIRAMINE MALEATE
     Dosage: 4 MG AND 1 TAKEN PRIOR TO STUDY
     Route: 042
     Dates: start: 20180202
  27. CHLORPHENIRAMINE MALEATE [Concomitant]
     Active Substance: CHLORPHENIRAMINE MALEATE
     Dosage: 4 MG AND 11 DAYS
     Route: 048
     Dates: start: 20190909, end: 20190915
  28. CHLORPHENIRAMINE MALEATE [Concomitant]
     Active Substance: CHLORPHENIRAMINE MALEATE
     Dosage: 4 MG TAKEN PRIOR TO STUDY
     Route: 042
     Dates: start: 20180202
  29. CIPROFLOXACIN [Concomitant]
     Active Substance: CIPROFLOXACIN
     Dosage: 1000 MG, QD (DOSE FORM: 245)
     Route: 048
     Dates: start: 201910, end: 20191009
  30. CIPROFLOXACIN [Concomitant]
     Active Substance: CIPROFLOXACIN
     Dosage: 500 MG AND 21 DAYS
     Route: 048
     Dates: start: 201910, end: 20191009
  31. CLARITHROMYCIN [Concomitant]
     Active Substance: CLARITHROMYCIN
     Dosage: 1000 MG, QD (DOSE FORM: 245)
     Route: 048
     Dates: start: 20190717, end: 20190724
  32. CLARITHROMYCIN [Concomitant]
     Active Substance: CLARITHROMYCIN
     Dosage: 500 MG AND 21 DAYS
     Route: 048
     Dates: start: 20180717, end: 20180724
  33. CLOTRIMAZOLE [Concomitant]
     Active Substance: CLOTRIMAZOLE
     Dosage: DOSE FORM: 17
     Route: 061
     Dates: start: 20180125
  34. CLOTRIMAZOLE [Concomitant]
     Active Substance: CLOTRIMAZOLE
     Dosage: UNK
     Route: 061
     Dates: start: 20180125
  35. AMOXICILLIN\CLAVULANATE POTASSIUM [Concomitant]
     Active Substance: AMOXICILLIN\CLAVULANATE POTASSIUM
     Dosage: 1875 MG, QD (DOSE FORM: 245)
     Route: 048
     Dates: start: 20190915, end: 20190916
  36. AMOXICILLIN\CLAVULANATE POTASSIUM [Concomitant]
     Active Substance: AMOXICILLIN\CLAVULANATE POTASSIUM
     Dosage: 625 MG AND 31 DAYS
     Route: 048
     Dates: start: 20190915, end: 20190916
  37. COCODAMOL [Concomitant]
     Active Substance: ACETAMINOPHEN\CODEINE PHOSPHATE
     Dosage: 1 DF 30/500 MG FORM STRENGTH (DOSE FORM: 245)
     Route: 048
     Dates: start: 20030104, end: 20180225
  38. COCODAMOL [Concomitant]
     Active Substance: ACETAMINOPHEN\CODEINE PHOSPHATE
     Dosage: 1 DF (DOSE FORM: 245)
     Route: 065
     Dates: start: 20180302
  39. COCODAMOL [Concomitant]
     Active Substance: ACETAMINOPHEN\CODEINE PHOSPHATE
     Dosage: 1 DF 30/500 MG FORM STRENGTH (DOSE FORM: 245)
     Route: 065
     Dates: start: 20030104, end: 20180225
  40. COCODAMOL [Concomitant]
     Active Substance: ACETAMINOPHEN\CODEINE PHOSPHATE
     Dosage: 1 DOSAGE
     Route: 065
     Dates: start: 20180302
  41. COCODAMOL [Concomitant]
     Active Substance: ACETAMINOPHEN\CODEINE PHOSPHATE
     Dosage: 1 DOSAGE 30/500 MG FORM STRENGTH
     Route: 065
     Dates: start: 20030104, end: 20180225
  42. CHOLECALCIFEROL [Concomitant]
     Active Substance: CHOLECALCIFEROL
     Dosage: 4 DF, QD (DOSE FORM: 245)
     Route: 048
     Dates: start: 20180920
  43. CHOLECALCIFEROL [Concomitant]
     Active Substance: CHOLECALCIFEROL
     Dosage: 2 WITH NO UNIT REPORTED, QD (DOSE FORM: 245)
     Route: 048
     Dates: start: 20180926
  44. CHOLECALCIFEROL [Concomitant]
     Active Substance: CHOLECALCIFEROL
     Dosage: AND 21 DAYS
     Route: 048
     Dates: start: 20180926
  45. CYCLIZINE [Concomitant]
     Active Substance: CYCLIZINE
     Dosage: 50 MG (DOSE FORM: 245)
     Route: 048
     Dates: start: 20181102
  46. CYCLIZINE [Concomitant]
     Active Substance: CYCLIZINE
     Dosage: 50 MG
     Route: 048
     Dates: start: 20181102
  47. DOXAZOSIN [Concomitant]
     Active Substance: DOXAZOSIN MESYLATE
     Dosage: 2 MG, QD (DOSE FORM: 245, CUMULATIVE DOSE TO FIRST REACTION: 9882.083 MG)
     Route: 048
     Dates: start: 20040816
  48. DOXAZOSIN [Concomitant]
     Active Substance: DOXAZOSIN MESYLATE
     Dosage: 2 MG, QD (DOSE FORM: 245, CUMULATIVE DOSE TO FIRST REACTION: 1119.9166 MG)
     Route: 048
     Dates: start: 20190908
  49. DOXAZOSIN [Concomitant]
     Active Substance: DOXAZOSIN MESYLATE
     Dosage: 2 MG AND 11 DAYS
     Route: 048
     Dates: start: 20040816
  50. DOXAZOSIN [Concomitant]
     Active Substance: DOXAZOSIN MESYLATE
     Dosage: 2 MG AND 11 DAYS
     Route: 048
     Dates: start: 20190908
  51. DOXYCYCLINE [Concomitant]
     Active Substance: DOXYCYCLINE
     Dosage: 200 MG, QD (DOSE FORM: 245, CUMULATIVE DOSE TO FIRST REACTION: 52200.0 MG)
     Route: 048
     Dates: start: 20181113, end: 20181113
  52. DOXYCYCLINE [Concomitant]
     Active Substance: DOXYCYCLINE
     Dosage: 100 MG, QD (DOSE FORM: 245, CUMULATIVE DOSE TO FIRST REACTION: 26200.0 MG)
     Route: 048
     Dates: start: 20181114, end: 20181119
  53. DOXYCYCLINE [Concomitant]
     Active Substance: DOXYCYCLINE
     Dosage: 100 MG AND 21 DAYS
     Route: 048
     Dates: start: 20181113, end: 20181113
  54. DOXYCYCLINE [Concomitant]
     Active Substance: DOXYCYCLINE
     Dosage: 100 MG AND 11 DAYS
     Route: 048
     Dates: start: 20181114, end: 20181119
  55. EUMOVATE [Concomitant]
     Active Substance: CLOBETASONE BUTYRATE
     Indication: Skin abrasion
     Dosage: UNK
  56. EUMOVATE [Concomitant]
     Active Substance: CLOBETASONE BUTYRATE
     Indication: Pruritus
     Dosage: 2 WITH NO UNIT REPORTED, QD
     Route: 061
     Dates: start: 20190403
  57. FERROUS FUMARATE [Concomitant]
     Active Substance: FERROUS FUMARATE
     Dosage: 630 MG (DOSE FORM: 245)
     Route: 048
     Dates: start: 20190730
  58. FERROUS FUMARATE [Concomitant]
     Active Substance: FERROUS FUMARATE
     Dosage: 210 MG AND 31 DAYS
     Route: 048
     Dates: start: 20190730
  59. FEXOFENADINE [Concomitant]
     Active Substance: FEXOFENADINE HYDROCHLORIDE
     Indication: Pruritus
     Dosage: 180 MG, QD (DOSE FORM: 245)
     Route: 048
     Dates: start: 20190403, end: 20190403
  60. FEXOFENADINE [Concomitant]
     Active Substance: FEXOFENADINE HYDROCHLORIDE
     Indication: Skin abrasion
     Dosage: 180 MG, QD (DOSE FORM: 245)
     Route: 048
     Dates: start: 201910, end: 20191119
  61. FEXOFENADINE [Concomitant]
     Active Substance: FEXOFENADINE HYDROCHLORIDE
     Indication: Pruritus
     Dosage: 180 MG AND 11 DAYS
     Route: 048
     Dates: start: 20190403, end: 20190403
  62. FEXOFENADINE [Concomitant]
     Active Substance: FEXOFENADINE HYDROCHLORIDE
     Indication: Skin abrasion
     Dosage: 180 MG AND 11 DAYS
     Route: 048
     Dates: start: 201910, end: 20191119
  63. FEXOFENADINE HYDROCHLORIDE [Concomitant]
     Active Substance: FEXOFENADINE HYDROCHLORIDE
     Indication: Pruritus
     Dosage: 180 MG, QD (DOSE FORM: 245, CUMULATIVE DOSE: 72352.5 MG)
     Route: 048
     Dates: start: 20190403, end: 20190403
  64. FEXOFENADINE HYDROCHLORIDE [Concomitant]
     Active Substance: FEXOFENADINE HYDROCHLORIDE
     Indication: Skin abrasion
     Dosage: 180 MG, QD (DOSE FORM: 245)
     Route: 048
     Dates: start: 201910, end: 20191119
  65. FLUCONAZOLE [Concomitant]
     Active Substance: FLUCONAZOLE
     Dosage: 100 MG, QD (DOSE FORM: 245)
     Route: 048
     Dates: start: 20180125
  66. FLUCONAZOLE [Concomitant]
     Active Substance: FLUCONAZOLE
     Dosage: 100 MG AND 11 DAYS
     Route: 048
     Dates: start: 20180125
  67. FOLIC ACID [Concomitant]
     Active Substance: FOLIC ACID
     Dosage: 5 MG, QD (DOSE FORM: 245)
     Route: 048
     Dates: start: 20030207
  68. FOLIC ACID [Concomitant]
     Active Substance: FOLIC ACID
     Dosage: 5 MG AND 11 DAYS
     Route: 048
     Dates: start: 20030207
  69. GENTAMICIN [Concomitant]
     Active Substance: GENTAMICIN
     Indication: Sepsis
     Dosage: 400 MG
     Route: 042
     Dates: start: 20181119, end: 20181119
  70. GENTAMICIN [Concomitant]
     Active Substance: GENTAMICIN
     Dosage: 400 MG
     Route: 042
     Dates: start: 20190526, end: 20190526
  71. GENTAMICIN [Concomitant]
     Active Substance: GENTAMICIN
     Dosage: 400 MG
     Route: 042
     Dates: start: 20190528, end: 20190528
  72. GENTAMICIN [Concomitant]
     Active Substance: GENTAMICIN
     Dosage: 400 MG (ROA: INTRA CORPUS CAVERNOSUM)
     Dates: start: 20190911, end: 20190911
  73. GENTAMICIN [Concomitant]
     Active Substance: GENTAMICIN
     Dosage: 400 MG
     Route: 042
     Dates: start: 20190913, end: 20190913
  74. DEXTROSE [Concomitant]
     Active Substance: DEXTROSE
     Indication: Gastrointestinal haemorrhage
     Dosage: 0.18% NACL 4% GLUCOSE + 20MML KCL
     Route: 042
     Dates: start: 20190525, end: 20190525
  75. HEPARIN [Concomitant]
     Active Substance: HEPARIN SODIUM
     Indication: Prophylaxis
     Dosage: 5 ML
     Route: 042
     Dates: start: 20190502, end: 20191106
  76. HEPARIN SODIUM [Concomitant]
     Active Substance: HEPARIN SODIUM
     Indication: Prophylaxis
     Dosage: 5 ML
     Route: 042
     Dates: start: 20190502, end: 20191106
  77. HYDROCORTISONE [Concomitant]
     Active Substance: HYDROCORTISONE
     Dosage: 1 WITH NO UNIT REPORTED, AS NEEDED
     Route: 061
     Dates: start: 20180605
  78. HYDROXOCOBALAMIN [Concomitant]
     Active Substance: HYDROXOCOBALAMIN
     Dosage: 1 MG/1ML
     Route: 030
     Dates: start: 20020115
  79. IRON [Concomitant]
     Active Substance: IRON
     Dosage: 630 MG, QD (DOSE FORM: 245)
     Route: 048
     Dates: start: 20190730
  80. METOCLOPRAMIDE [Concomitant]
     Active Substance: METOCLOPRAMIDE
     Dosage: 10 MG TAKEN PRIOR TO STUDY (DOSE FORM: 245)
     Route: 048
     Dates: start: 20180202
  81. METOCLOPRAMIDE [Concomitant]
     Active Substance: METOCLOPRAMIDE
     Dosage: 10 MG (DOSE FORM: 245)
     Route: 048
     Dates: start: 20190909, end: 20190909
  82. METOCLOPRAMIDE [Concomitant]
     Active Substance: METOCLOPRAMIDE
     Dosage: 10 MG, AS NEEDED (DOSE FORM: 245)
     Route: 048
     Dates: start: 201910
  83. METOCLOPRAMIDE [Concomitant]
     Active Substance: METOCLOPRAMIDE
     Dosage: 10 MG TAKEN PRIOR TO STUDY
     Route: 048
     Dates: start: 20180202
  84. METOCLOPRAMIDE [Concomitant]
     Active Substance: METOCLOPRAMIDE
     Dosage: 10 MG, AS NEEDED
     Route: 048
     Dates: start: 201910
  85. METOCLOPRAMIDE [Concomitant]
     Active Substance: METOCLOPRAMIDE
     Dosage: 10 MG
     Route: 048
     Dates: start: 20190909, end: 20190909
  86. METRONIDAZOLE [Concomitant]
     Active Substance: METRONIDAZOLE
     Dosage: 1500 MG, QD (CUMULATIVE DOSE TO FIRST REACTION: 400500.0 MG)
     Route: 042
     Dates: start: 20181119, end: 20181121
  87. METRONIDAZOLE [Concomitant]
     Active Substance: METRONIDAZOLE
     Dosage: 500 MG AND 31 DAYS
     Route: 042
     Dates: start: 20181119, end: 20181121
  88. METRONIDAZOLE [Concomitant]
     Active Substance: METRONIDAZOLE
     Dosage: 400 MG
     Route: 065
     Dates: start: 20181122, end: 20181123
  89. METRONIDAZOLE [Concomitant]
     Active Substance: METRONIDAZOLE
     Dosage: 1200 MG, QD (CUMUTAIVE DOSE TO FIRST REACTION: 324000.0 MG)
     Route: 042
     Dates: start: 20181122, end: 20181123
  90. METRONIDAZOLE [Concomitant]
     Active Substance: METRONIDAZOLE
     Dosage: 400 MG AND 31 DAYS
     Route: 042
     Dates: start: 20181122, end: 20181123
  91. METRONIDAZOLE [Concomitant]
     Active Substance: METRONIDAZOLE
     Dosage: 1500 MG, QD (CUMULATIVE DOSE TO FIRST REACTION: 682437.5 MG)
     Route: 042
     Dates: start: 20190526
  92. METRONIDAZOLE [Concomitant]
     Active Substance: METRONIDAZOLE
     Dosage: 500 MG AND 31 DAYS
     Route: 042
     Dates: start: 20190526
  93. METRONIDAZOLE [Concomitant]
     Active Substance: METRONIDAZOLE
     Dosage: 1500 MG, QD (DOSE FORM: 245, CUMULATIVE DOSE TO FIRST REACTION: 844437.5 MG)
     Route: 048
     Dates: start: 20190911, end: 20190915
  94. METRONIDAZOLE [Concomitant]
     Active Substance: METRONIDAZOLE
     Dosage: 1500 MG, QD (CUMULATIVE DOSE TO FIRST REACTION: 296937.5 MG)
     Route: 042
     Dates: start: 20190911, end: 20190915
  95. METRONIDAZOLE [Concomitant]
     Active Substance: METRONIDAZOLE
     Dosage: 500 MG AND 31 DAYS
     Route: 042
     Dates: start: 20190911, end: 20190915
  96. METRONIDAZOLE [Concomitant]
     Active Substance: METRONIDAZOLE
     Dosage: 400 MG
     Route: 048
     Dates: start: 20190916, end: 20190916
  97. METRONIDAZOLE [Concomitant]
     Active Substance: METRONIDAZOLE
     Dosage: 1200 MG, QD (CUMULATIVE DOSE TO FIRST REACTION: 681550.0 MG)
     Route: 048
     Dates: start: 20190916, end: 20190916
  98. METRONIDAZOLE [Concomitant]
     Active Substance: METRONIDAZOLE
     Dosage: 400 MG AND 31 DAYS
     Route: 048
     Dates: start: 20190916, end: 20190916
  99. METRONIDAZOLE [Concomitant]
     Active Substance: METRONIDAZOLE
     Dosage: 400 MG (DOSE FORM: 245)
     Route: 048
     Dates: start: 20190918, end: 20190918
  100. METRONIDAZOLE [Concomitant]
     Active Substance: METRONIDAZOLE
     Dosage: 1200 MG, QD (DOSE FORM: 245)
     Route: 048
     Dates: start: 201910, end: 20191009
  101. OMEPRAZOLE [Concomitant]
     Active Substance: OMEPRAZOLE
     Dosage: 20 MG, QD (DOSE FORM: 245, CUMULATIVE DOSE TO FIRST REACTION: 61120.832 MG)
     Route: 048
     Dates: start: 20091014
  102. OMEPRAZOLE [Concomitant]
     Active Substance: OMEPRAZOLE
     Dosage: 80 MG, QD (DOSE FORM: 245, CUMULATIVE DOSE TO FIRST REACTION: 49600.0 MG)
     Route: 048
     Dates: start: 20191107, end: 20200205
  103. OMEPRAZOLE [Concomitant]
     Active Substance: OMEPRAZOLE
     Dosage: 40 MG AND 21 DAYS
     Route: 048
     Dates: start: 20191107, end: 20200205
  104. OMEPRAZOLE [Concomitant]
     Active Substance: OMEPRAZOLE
     Dosage: 20 MG AND 11 DAYS
     Route: 048
     Dates: start: 20091014
  105. ONDANSETRON [Concomitant]
     Active Substance: ONDANSETRON
     Dosage: 4 MG, AS NEEDED
     Route: 042
     Dates: start: 20181119, end: 20181122
  106. ONDANSETRON [Concomitant]
     Active Substance: ONDANSETRON
     Dosage: 4 MG, AS NEEDED (DOSE FORM: 245)
     Route: 048
     Dates: start: 20181216, end: 20190107
  107. ONDANSETRON [Concomitant]
     Active Substance: ONDANSETRON
     Dosage: 4 MG (DOSE FORM: 245)
     Route: 048
     Dates: start: 20190920, end: 20190920
  108. ONDANSETRON [Concomitant]
     Active Substance: ONDANSETRON
     Dosage: 4 MG, AS NEEDED
     Route: 048
     Dates: start: 20190920, end: 20190920
  109. ONDANSETRON [Concomitant]
     Active Substance: ONDANSETRON
     Dosage: 4 MG (DOSE FORM: 245)
     Route: 048
     Dates: start: 20200214, end: 20200214
  110. ONDANSETRON [Concomitant]
     Active Substance: ONDANSETRON
     Dosage: 4 MG, AS NEEDED
     Route: 048
     Dates: start: 20200214, end: 20200214
  111. ONDANSETRON [Concomitant]
     Active Substance: ONDANSETRON
     Dosage: 4 MG, AS NEEDED
     Route: 048
     Dates: start: 20181216, end: 20190107
  112. ONDANSETRON [Concomitant]
     Active Substance: ONDANSETRON
     Dosage: 4 MG, AS NEEDED
     Route: 048
     Dates: start: 20190920, end: 20190920
  113. ONDANSETRON [Concomitant]
     Active Substance: ONDANSETRON
     Dosage: 4 MG, AS NEEDED
     Route: 048
     Dates: start: 20200214, end: 20200214
  114. ACETAMINOPHEN [Concomitant]
     Active Substance: ACETAMINOPHEN
     Indication: Oedema
     Dosage: 1 G (DOSE FORM: 245)
     Route: 048
     Dates: start: 20180225, end: 20180301
  115. ACETAMINOPHEN [Concomitant]
     Active Substance: ACETAMINOPHEN
     Dosage: 1 G (DOSE FORM: 245)
     Route: 048
     Dates: start: 20180916, end: 20181002
  116. ACETAMINOPHEN [Concomitant]
     Active Substance: ACETAMINOPHEN
     Dosage: 1 G, AS NEEDED (DOSE FORM: 245)
     Route: 048
     Dates: start: 20181003
  117. ACETAMINOPHEN [Concomitant]
     Active Substance: ACETAMINOPHEN
     Dosage: 1 G (DOSE FORM: 245)
     Route: 042
     Dates: start: 20181220, end: 20181220
  118. ACETAMINOPHEN [Concomitant]
     Active Substance: ACETAMINOPHEN
     Indication: Oedema
     Dosage: 1 G
     Route: 048
     Dates: start: 20180916, end: 20181002
  119. ACETAMINOPHEN [Concomitant]
     Active Substance: ACETAMINOPHEN
     Dosage: 1 G, AS NEEDED
     Route: 048
     Dates: start: 20181003
  120. ACETAMINOPHEN [Concomitant]
     Active Substance: ACETAMINOPHEN
     Dosage: 1 G
     Route: 048
     Dates: start: 20180225, end: 20180301
  121. ACETAMINOPHEN [Concomitant]
     Active Substance: ACETAMINOPHEN
     Dosage: 1 G
     Route: 048
     Dates: start: 20181220, end: 20181220
  122. PENTASA [Concomitant]
     Active Substance: MESALAMINE
     Indication: Crohn^s disease
     Dosage: 1 WITH NO UNIT REPORTED, SACHETS, QD
     Route: 048
     Dates: start: 20131217, end: 20180730
  123. PENTASA [Concomitant]
     Active Substance: MESALAMINE
     Dosage: 4 G, QD
     Route: 048
     Dates: start: 20180730
  124. PENTASA [Concomitant]
     Active Substance: MESALAMINE
     Dosage: 4 G AND 11 DAYS
     Route: 048
     Dates: start: 20180730
  125. CHLORPHENIRAMINE MALEATE [Concomitant]
     Active Substance: CHLORPHENIRAMINE MALEATE
     Dosage: 4 MG (DOSE FORM: 245)
     Route: 048
     Dates: start: 20180125
  126. CHLORPHENIRAMINE MALEATE [Concomitant]
     Active Substance: CHLORPHENIRAMINE MALEATE
     Dosage: 4 MG
     Route: 048
     Dates: start: 20180125
  127. QUININE [Concomitant]
     Active Substance: QUININE
     Dosage: 200 MG, QD (DOSE FORM: 245)
     Route: 048
     Dates: start: 20040219
  128. QUININE SULFATE [Concomitant]
     Active Substance: QUININE SULFATE
     Dosage: 200 MG, QD (DOSE FORM: 245, CUMULATIVE DOSE TO FIRST REACTION: 1024000.0 MG)
     Route: 048
     Dates: start: 20040219
  129. QUININE SULFATE [Concomitant]
     Active Substance: QUININE SULFATE
     Dosage: 200 MG AND 11  DAYS
     Route: 048
     Dates: start: 20040219
  130. RANITIDINE [Concomitant]
     Active Substance: RANITIDINE
     Dosage: 50 MG (TAKEN PRIOR TO STUDY)
     Route: 042
     Dates: start: 20180202
  131. RANITIDINE [Concomitant]
     Active Substance: RANITIDINE
     Dosage: 300 MG
     Route: 048
     Dates: start: 20180212
  132. RANITIDINE [Concomitant]
     Active Substance: RANITIDINE
     Dosage: 150 MG
     Route: 065
     Dates: start: 20181123, end: 20181123
  133. RANITIDINE [Concomitant]
     Active Substance: RANITIDINE
     Dosage: 300 MG QD (DOSE FORM: 245)
     Route: 048
     Dates: start: 20200212
  134. RANITIDINE [Concomitant]
     Active Substance: RANITIDINE
     Dosage: 300 MG
     Route: 048
     Dates: start: 20180212
  135. HUMAN RED BLOOD CELL [Concomitant]
     Active Substance: HUMAN RED BLOOD CELL
     Indication: Gastrointestinal haemorrhage
     Dosage: UNK
     Route: 042
     Dates: start: 20190511, end: 20190511
  136. HUMAN RED BLOOD CELL [Concomitant]
     Active Substance: HUMAN RED BLOOD CELL
     Indication: Haemorrhage
     Dosage: 3 UNIT
     Route: 042
     Dates: start: 20190523, end: 20190524
  137. SILVER NITRATE [Concomitant]
     Active Substance: SILVER NITRATE
     Indication: Haemorrhage
     Dosage: 1 UNIT
     Route: 061
     Dates: start: 20180329, end: 20180329
  138. SILVER NITRATE [Concomitant]
     Active Substance: SILVER NITRATE
     Dosage: UNK
     Route: 061
     Dates: start: 20190510, end: 20190510
  139. SILVER NITRATE [Concomitant]
     Active Substance: SILVER NITRATE
     Dosage: UNK
     Route: 061
     Dates: start: 20190522, end: 20190522
  140. SILVER NITRATE [Concomitant]
     Active Substance: SILVER NITRATE
     Dosage: UNK
     Route: 061
     Dates: start: 20190527, end: 20190527
  141. SILVER NITRATE [Concomitant]
     Active Substance: SILVER NITRATE
     Dosage: UNK
     Route: 061
     Dates: start: 20190730, end: 20190730
  142. SODIUM CHLORIDE [Concomitant]
     Active Substance: SODIUM CHLORIDE
     Indication: Gastrointestinal haemorrhage
     Dosage: 500 ML
     Route: 042
     Dates: start: 20181122, end: 20181123
  143. SODIUM CHLORIDE [Concomitant]
     Active Substance: SODIUM CHLORIDE
     Dosage: 500 ML
     Route: 042
     Dates: start: 20181122, end: 20181123
  144. SODIUM CHLORIDE [Concomitant]
     Active Substance: SODIUM CHLORIDE
     Dosage: 500 ML
     Route: 042
     Dates: start: 20181123, end: 20181123
  145. SODIUM CHLORIDE [Concomitant]
     Active Substance: SODIUM CHLORIDE
     Dosage: 500 ML
     Route: 042
     Dates: start: 20181123, end: 20181123
  146. SODIUM CHLORIDE [Concomitant]
     Active Substance: SODIUM CHLORIDE
     Dosage: 500 ML
     Route: 042
     Dates: start: 20190522, end: 20190522
  147. SODIUM CHLORIDE [Concomitant]
     Active Substance: SODIUM CHLORIDE
     Dosage: 500 ML
     Route: 042
     Dates: start: 20190522, end: 20190522
  148. SODIUM CHLORIDE [Concomitant]
     Active Substance: SODIUM CHLORIDE
     Dosage: 0.18NA CL 4% GLUCOSE
     Route: 042
     Dates: start: 20190523, end: 20190523
  149. SODIUM CHLORIDE [Concomitant]
     Active Substance: SODIUM CHLORIDE
     Dosage: 500 ML
     Route: 042
     Dates: start: 20190523, end: 20190523
  150. SUGAMMADEX [Concomitant]
     Active Substance: SUGAMMADEX
     Dosage: 200 MG
     Route: 042
     Dates: start: 20181220, end: 20181220
  151. TEICOPLANIN [Concomitant]
     Active Substance: TEICOPLANIN
     Dosage: 400 MG
     Route: 065
     Dates: start: 20181220, end: 20181224
  152. TERBUTALINE [Concomitant]
     Active Substance: TERBUTALINE
     Dosage: 800 MICROGRAM, QD
     Dates: start: 20030108
  153. TERBUTALINE [Concomitant]
     Active Substance: TERBUTALINE
     Dosage: 200 MICROGRAM, QD
     Dates: start: 20030108
  154. TERBUTALINE [Concomitant]
     Active Substance: TERBUTALINE
     Dosage: 200 MICROGRAM 41 DAYS
     Dates: start: 20030108
  155. TOLNAFTATE [Concomitant]
     Active Substance: TOLNAFTATE
     Dosage: UNK
     Route: 061
     Dates: start: 20181220, end: 20190116
  156. TRANEXAMIC ACID [Concomitant]
     Active Substance: TRANEXAMIC ACID
     Dosage: 3 G, QD (DOSE FORM: 245)
     Route: 048
     Dates: start: 20190804, end: 20190806
  157. TRANEXAMIC ACID [Concomitant]
     Active Substance: TRANEXAMIC ACID
     Dosage: 3 G, QD
     Route: 048
     Dates: start: 20190804, end: 20190806
  158. TRANEXAMIC ACID [Concomitant]
     Active Substance: TRANEXAMIC ACID
     Dosage: 1 G AND 31 DAYS
     Route: 048
     Dates: start: 20190804, end: 20190806
  159. TRIMETHOPRIM [Concomitant]
     Active Substance: TRIMETHOPRIM
     Dosage: 400 MG, QD (DOSE FORM: 245)
     Route: 048
     Dates: start: 20190813, end: 20190815
  160. TRIMETHOPRIM [Concomitant]
     Active Substance: TRIMETHOPRIM
     Dosage: 200 MG AND 21 DAYS
     Route: 048
     Dates: start: 20190813, end: 20190815
  161. VANCOMYCIN [Concomitant]
     Active Substance: VANCOMYCIN
     Indication: Sepsis
     Dosage: 2000 MG
     Route: 042
     Dates: start: 20181119, end: 20181119
  162. VANCOMYCIN [Concomitant]
     Active Substance: VANCOMYCIN
     Dosage: 500 MG
     Route: 042
     Dates: start: 20181120, end: 20181122
  163. VANCOMYCIN [Concomitant]
     Active Substance: VANCOMYCIN
     Dosage: 2000 MG
     Route: 042
     Dates: start: 20190526, end: 20190526
  164. VANCOMYCIN [Concomitant]
     Active Substance: VANCOMYCIN
     Dosage: 1000 MG, QD
     Route: 042
     Dates: start: 20190527
  165. VANCOMYCIN [Concomitant]
     Active Substance: VANCOMYCIN
     Dosage: 500 MG AND 21 DAYS
     Route: 042
     Dates: start: 20190527
  166. ZOLEDRONIC ACID [Concomitant]
     Active Substance: ZOLEDRONIC ACID
     Indication: Metastases to bone
     Dosage: 4 MG
     Route: 042
     Dates: start: 20181019

REACTIONS (12)
  - Cancer pain [Recovered/Resolved]
  - Disease progression [Recovered/Resolved]
  - C-reactive protein increased [Recovered/Resolved]
  - Wound [Recovered/Resolved]
  - Oedema peripheral [Recovered/Resolved]
  - Oedema [Recovered/Resolved]
  - Mucosal inflammation [Recovered/Resolved]
  - Bone pain [Recovered/Resolved]
  - Vomiting [Recovered/Resolved]
  - Diarrhoea [Recovered/Resolved]
  - Arthralgia [Not Recovered/Not Resolved]
  - Product use issue [Unknown]

NARRATIVE: CASE EVENT DATE: 20180225
